FAERS Safety Report 7952870-8 (Version None)
Quarter: 2011Q4

REPORT INFORMATION
  Report Type: 
  Country: None (occurrence: None)
  Receive Date: 20111201
  Receipt Date: 20111122
  Transmission Date: 20120403
  Serious: Yes (Life-Threatening, Other)
  Sender: FDA-Public Use
  Company Number: US-BAYER-2011-081051

PATIENT
  Age: 37 Year
  Sex: Female

DRUGS (2)
  1. MIRENA [Suspect]
     Indication: CONTRACEPTION
     Dosage: 20 MCG/24HR, CONT
     Route: 015
     Dates: start: 20110426, end: 20110830
  2. MIRENA [Suspect]
     Indication: MENSTRUATION IRREGULAR

REACTIONS (27)
  - DEPRESSION [None]
  - OVARIAN CYST [None]
  - IRRITABILITY [None]
  - ANXIETY [None]
  - AMENORRHOEA [None]
  - NAUSEA [None]
  - MEMORY IMPAIRMENT [None]
  - SUICIDAL IDEATION [None]
  - BACK PAIN [None]
  - HYPOAESTHESIA [None]
  - NERVOUSNESS [None]
  - INSOMNIA [None]
  - ACNE [None]
  - ABDOMINAL DISTENSION [None]
  - PALPITATIONS [None]
  - DEPRESSED MOOD [None]
  - BREAST PAIN [None]
  - PANIC ATTACK [None]
  - DYSPAREUNIA [None]
  - VISUAL IMPAIRMENT [None]
  - WEIGHT INCREASED [None]
  - PARAESTHESIA [None]
  - AGITATION [None]
  - CRYING [None]
  - PELVIC PAIN [None]
  - SCAR [None]
  - ABDOMINAL PAIN [None]
